FAERS Safety Report 16164386 (Version 2)
Quarter: 2019Q2

REPORT INFORMATION
  Report Type: Report from Study
  Country: DE (occurrence: DE)
  Receive Date: 20190405
  Receipt Date: 20190415
  Transmission Date: 20190711
  Serious: Yes (Hospitalization)
  Sender: FDA-Public Use
  Company Number: DE-CELGENEUS-DEU-20190310474

PATIENT
  Age: 55 Year
  Sex: Female
  Weight: 58 kg

DRUGS (6)
  1. CYCLOPHOSPHAMIDE. [Suspect]
     Active Substance: CYCLOPHOSPHAMIDE
     Indication: BREAST CANCER
     Dosage: 970 MILLIGRAM
     Route: 065
     Dates: start: 20190314, end: 20190314
  2. DENOSUMAB [Suspect]
     Active Substance: DENOSUMAB
     Indication: BREAST CANCER
     Dosage: 120 MILLIGRAM
     Route: 058
     Dates: start: 20181214, end: 20190307
  3. ABP 980 [Suspect]
     Active Substance: INVESTIGATIONAL BIOSIMILARS
     Indication: BREAST CANCER
     Dosage: 350 MILLIGRAM
     Route: 041
     Dates: start: 20181213, end: 20190314
  4. ABRAXANE [Suspect]
     Active Substance: PACLITAXEL
     Indication: BREAST CANCER
     Dosage: 200 MILLIGRAM
     Route: 041
     Dates: start: 20181214, end: 20190307
  5. PERTUZUMAB. [Suspect]
     Active Substance: PERTUZUMAB
     Indication: BREAST CANCER
     Dosage: 420 MILLIGRAM
     Route: 041
     Dates: start: 20181213, end: 20190314
  6. EPIRUBICIN [Suspect]
     Active Substance: EPIRUBICIN
     Indication: BREAST CANCER
     Dosage: 145 MILLIGRAM
     Route: 041
     Dates: start: 20190314, end: 20190314

REACTIONS (2)
  - Fatigue [Recovering/Resolving]
  - Pulmonary embolism [Recovering/Resolving]

NARRATIVE: CASE EVENT DATE: 20190311
